FAERS Safety Report 6746472-9 (Version None)
Quarter: 2010Q2

REPORT INFORMATION
  Report Type: 
  Country: None (occurrence: None)
  Receive Date: 20100528
  Receipt Date: 20091203
  Transmission Date: 20101027
  Serious: No
  Sender: FDA-Public Use
  Company Number: US-ASTRAZENECA-2009SE32385

PATIENT
  Age: 20 Year
  Sex: Male

DRUGS (1)
  1. PRILOSEC OTC [Suspect]
     Route: 048
     Dates: start: 20091201, end: 20091201

REACTIONS (4)
  - DRUG ADMINISTRATION ERROR [None]
  - PRURITUS [None]
  - RASH MACULAR [None]
  - URTICARIA [None]
